FAERS Safety Report 4448053-9 (Version None)
Quarter: 2004Q3

REPORT INFORMATION
  Report Type: 
  Country: None (occurrence: None)
  Receive Date: 20040913
  Receipt Date: 20040603
  Transmission Date: 20050211
  Serious: Yes (Hospitalization, Disabling)
  Sender: FDA-Public Use
  Company Number: US-MERCK-0406USA00247

PATIENT
  Age: 52 Year
  Sex: Female
  Weight: 55 kg

DRUGS (13)
  1. ELAVIL [Concomitant]
     Route: 065
  2. ASPIRIN [Concomitant]
     Route: 065
  3. BROMFENEX (BROMPHENIRAMINE MALEATE (+) PSEUDOEPHEDRINE HYDROCHLORIDE) [Concomitant]
     Indication: HYPERSENSITIVITY
     Route: 065
  4. ZYRTEC [Concomitant]
     Route: 065
  5. FLEXERIL [Concomitant]
     Route: 065
  6. PREMPRO [Concomitant]
     Route: 065
  7. DECONSAL [Concomitant]
     Route: 065
  8. SKELAXIN [Concomitant]
     Route: 065
     Dates: start: 20010101
  9. NASONEX [Concomitant]
     Route: 065
  10. POTASSIUM (UNSPECIFIED) [Concomitant]
     Route: 065
  11. INDERAL [Concomitant]
     Route: 065
  12. VIOXX [Suspect]
     Indication: FIBROMYALGIA
     Route: 048
     Dates: start: 20020114, end: 20020609
  13. VIOXX [Suspect]
     Indication: ARTHRITIS
     Route: 048
     Dates: start: 20020114, end: 20020609

REACTIONS (30)
  - AORTIC VALVE INCOMPETENCE [None]
  - ARTERIOSCLEROSIS [None]
  - BALANCE DISORDER [None]
  - BLOOD CHOLESTEROL INCREASED [None]
  - BREAST FIBROSIS [None]
  - CEREBRAL INFARCTION [None]
  - CEREBROVASCULAR ACCIDENT [None]
  - CHRONIC OBSTRUCTIVE AIRWAYS DISEASE [None]
  - DYSPNOEA [None]
  - DYSPNOEA EXERTIONAL [None]
  - EMPHYSEMA [None]
  - ENCEPHALOMALACIA [None]
  - FACIAL PALSY [None]
  - GAIT DISTURBANCE [None]
  - HAND FRACTURE [None]
  - HEPATIC CYST [None]
  - INTRADUCTAL PAPILLOMA OF BREAST [None]
  - MITRAL VALVE INCOMPETENCE [None]
  - OBSTRUCTIVE AIRWAYS DISORDER [None]
  - OXYGEN SATURATION DECREASED [None]
  - PERICARDIAL EFFUSION [None]
  - PERICARDIAL FIBROSIS [None]
  - PULMONARY HYPERTENSION [None]
  - PULMONARY VASCULAR DISORDER [None]
  - RASH [None]
  - SINUS BRADYCARDIA [None]
  - SINUS TACHYCARDIA [None]
  - SPIROMETRY ABNORMAL [None]
  - TRICUSPID VALVE INCOMPETENCE [None]
  - WHEEZING [None]
